FAERS Safety Report 10791897 (Version 1)
Quarter: 2015Q1

REPORT INFORMATION
  Report Type: Spontaneous
  Country: GB (occurrence: None)
  Receive Date: 20150211
  Receipt Date: 20150211
  Transmission Date: 20150721
  Serious: No
  Sender: FDA-Public Use
  Company Number: GB-LHC-2015019

PATIENT
  Sex: Male

DRUGS (1)
  1. LIQUID MEDICAL OXYGEN (OXYGEN) (GAS FOR INHALATION) (VERUM) [Suspect]
     Active Substance: OXYGEN
     Indication: PRODUCT USED FOR UNKNOWN INDICATION
     Route: 055

REACTIONS (2)
  - Thermal burn [None]
  - Medical device complication [None]
